FAERS Safety Report 13905375 (Version 1)
Quarter: 2017Q3

REPORT INFORMATION
  Report Type: Spontaneous
  Country: US (occurrence: None)
  Receive Date: 20170821
  Receipt Date: 20170821
  Transmission Date: 20171127
  Serious: Yes (Hospitalization)
  Sender: FDA-Public Use
  Company Number: None

PATIENT
  Age: 57 Year
  Sex: Female

DRUGS (5)
  1. ACID [Concomitant]
     Active Substance: UNSPECIFIED INGREDIENT
  2. OMEGA 3 [Concomitant]
     Active Substance: OMEGA-3 FATTY ACIDS
  3. MVI [Concomitant]
     Active Substance: VITAMINS
  4. TEMOZOLOMIDE, 100 MG TEVA [Suspect]
     Active Substance: TEMOZOLOMIDE
     Indication: UTERINE CANCER
     Route: 048
     Dates: start: 20170726
  5. CALCIUM/D3 [Concomitant]
     Active Substance: CALCIUM\CHOLECALCIFEROL

REACTIONS (1)
  - Lung lobectomy [None]

NARRATIVE: CASE EVENT DATE: 20170815
